FAERS Safety Report 14716025 (Version 1)
Quarter: 2018Q2

REPORT INFORMATION
  Report Type: Spontaneous
  Country: DE (occurrence: DE)
  Receive Date: 20180404
  Receipt Date: 20180404
  Transmission Date: 20180711
  Serious: Yes (Other)
  Sender: FDA-Public Use
  Company Number: DE-REGENERON PHARMACEUTICALS, INC.-2018-20240

PATIENT

DRUGS (1)
  1. EYLEA [Suspect]
     Active Substance: AFLIBERCEPT
     Indication: AGE-RELATED MACULAR DEGENERATION
     Dosage: APPROXIMATELY 20 INJECTIONS IN TOTAL
     Route: 031

REACTIONS (5)
  - Scleromalacia [Unknown]
  - Scleral thinning [Unknown]
  - Scleral haemorrhage [Unknown]
  - Corneal disorder [Unknown]
  - Astigmatism [Unknown]

NARRATIVE: CASE EVENT DATE: 201712
